FAERS Safety Report 9215335 (Version 1)
Quarter: 2013Q2

REPORT INFORMATION
  Report Type: Report from Study
  Country: US (occurrence: US)
  Receive Date: 20130405
  Receipt Date: 20130405
  Transmission Date: 20140414
  Serious: Yes (Other)
  Sender: FDA-Public Use
  Company Number: US-US-EMD SERONO, INC.-7202505

PATIENT
  Age: 18 Year
  Sex: Male
  Weight: 66 kg

DRUGS (19)
  1. SAIZEN [(SOMATROPIN (RDNA ORIGIN) FOR INJECTION)] [Suspect]
     Indication: HYPOPITUITARISM
     Dates: start: 200309, end: 201003
  2. SAIZEN [(SOMATROPIN (RDNA ORIGIN) FOR INJECTION)] [Suspect]
     Indication: GROWTH HORMONE DEFICIENCY
     Dates: start: 201009
  3. SYNTHROID [Concomitant]
     Indication: PRODUCT USED FOR UNKNOWN INDICATION
  4. NAMENDA [Concomitant]
     Indication: PRODUCT USED FOR UNKNOWN INDICATION
     Dosage: ONE TABLET BY MOUTH TWICE PER DAY
     Route: 048
  5. MOTRIN [Concomitant]
     Indication: PRODUCT USED FOR UNKNOWN INDICATION
     Dosage: TWO TABLETS BY MOUTH AS NEEDED
     Route: 048
  6. RELPAX [Concomitant]
     Indication: PRODUCT USED FOR UNKNOWN INDICATION
     Route: 048
  7. INDERAL LA [Concomitant]
     Indication: TREMOR
     Dosage: ONE TABLET BY MOUTH DAILY
     Route: 048
  8. WELLBUTRIN XL [Concomitant]
     Indication: VOMITING
     Dosage: XRH TABLET ONE TABLET BY MOUTH DAILY
     Route: 048
  9. MELATONIN [Concomitant]
     Indication: SLEEP DISORDER
     Dosage: ONE TABLET BY MOUTH AT BEDTIME
     Route: 048
  10. ZYRTEC                             /00884302/ [Concomitant]
     Indication: PRODUCT USED FOR UNKNOWN INDICATION
     Route: 048
  11. PULMICORT [Concomitant]
     Indication: PRODUCT USED FOR UNKNOWN INDICATION
     Dosage: 1-2 INHALATIONS AS NEEDED
  12. NASONEX [Concomitant]
     Indication: PRODUCT USED FOR UNKNOWN INDICATION
     Dosage: 1 PUFF AS NEEDED
  13. VENTOLIN HFA [Concomitant]
     Indication: PRODUCT USED FOR UNKNOWN INDICATION
     Dosage: 2 PUFFS OR BY NEBULIZER EVERY FOUR HOURS AS NEEDED
  14. CALCIUM [Concomitant]
     Indication: PRODUCT USED FOR UNKNOWN INDICATION
     Route: 048
  15. VITAMIN A AND D [Concomitant]
     Indication: PRODUCT USED FOR UNKNOWN INDICATION
     Dosage: 8000-400 UNIT CAPSULES BY MOUTH
     Route: 048
  16. VITAMIN B COMPLEX                  /00003501/ [Concomitant]
     Indication: PRODUCT USED FOR UNKNOWN INDICATION
     Route: 048
  17. OMEGA 3 [Concomitant]
     Indication: PRODUCT USED FOR UNKNOWN INDICATION
     Route: 048
  18. FOCALIN [Concomitant]
     Indication: HYPERSOMNIA
  19. FOCALIN [Concomitant]

REACTIONS (3)
  - Sinus arrest [Unknown]
  - Atrioventricular block first degree [Unknown]
  - Nodal rhythm [Unknown]
